FAERS Safety Report 17498716 (Version 2)
Quarter: 2020Q2

REPORT INFORMATION
  Report Type: Spontaneous
  Country: FR (occurrence: FR)
  Receive Date: 20200305
  Receipt Date: 20200626
  Transmission Date: 20200713
  Serious: Yes (Life-Threatening, Hospitalization)
  Sender: FDA-Public Use
  Company Number: FR-ANIPHARMA-2020-FR-000072

PATIENT
  Age: 90 Year
  Sex: Female

DRUGS (14)
  1. ESIDREX [Suspect]
     Active Substance: HYDROCHLOROTHIAZIDE
     Dosage: UNKNOWN DOSE
     Route: 048
  2. (DOXYCYCLINE) [Suspect]
     Active Substance: DOXYCYCLINE
     Dosage: UNKNOWN DOSE
     Route: 048
  3. ACUPAN [Concomitant]
     Active Substance: NEFOPAM HYDROCHLORIDE
     Dosage: UNKNOWN DOSE
     Route: 065
  4. FOLIC ACID. [Concomitant]
     Active Substance: FOLIC ACID
     Dosage: UNKNOWN DOSE
     Route: 065
  5. RILMENIDINE [Concomitant]
     Active Substance: RILMENIDINE
     Dosage: UNKNOWN DOSE
     Route: 065
  6. CANDESARTAN. [Suspect]
     Active Substance: CANDESARTAN
     Indication: HYPERTENSION
     Dosage: UNKNOWN DOSE
     Route: 048
  7. KARDEGIC [Concomitant]
     Active Substance: ASPIRIN DL-LYSINE
     Dosage: UNKNOWN DOSE
     Route: 065
  8. ZOPICLONE [Concomitant]
     Active Substance: ZOPICLONE
     Dosage: UNKNOWN DOSE
     Route: 065
  9. PARACETAMOL [Concomitant]
     Active Substance: ACETAMINOPHEN
     Dosage: UNKNOWN DOSE
     Route: 065
  10. DIAMICRON [Suspect]
     Active Substance: GLICLAZIDE
     Dosage: UNKNOWN DOSE
     Route: 048
  11. DIPROSONE [Concomitant]
     Active Substance: BETAMETHASONE DIPROPIONATE
     Dosage: UNKNOWN DOSE
     Route: 065
  12. ESOMEPRAZOLE. [Concomitant]
     Active Substance: ESOMEPRAZOLE MAGNESIUM
     Dosage: UNKNOWN DOSE
     Route: 065
  13. SERETIDE [Concomitant]
     Active Substance: FLUTICASONE PROPIONATE\SALMETEROL XINAFOATE
     Dosage: UNKNOWN DOSE
     Route: 065
  14. METOJECT [Suspect]
     Active Substance: METHOTREXATE SODIUM
     Dosage: UNKOWN DOSE
     Route: 048

REACTIONS (1)
  - Pancreatitis acute [Recovering/Resolving]
